FAERS Safety Report 4445258-8 (Version None)
Quarter: 2004Q3

REPORT INFORMATION
  Report Type: 
  Country: None (occurrence: None)
  Receive Date: 20040907
  Receipt Date: 20040820
  Transmission Date: 20050211
  Serious: No
  Sender: FDA-Public Use
  Company Number: 04P-083-0268119-00

PATIENT
  Age: 40 Year
  Sex: Female

DRUGS (4)
  1. VALPROATE SODIUM [Suspect]
     Indication: BIPOLAR DISORDER
     Dosage: 500 MG, 2 IN 1 D, ORAL
     Route: 048
     Dates: start: 20040628, end: 20040628
  2. QUETIAPINE [Concomitant]
  3. DELORAZEPAM [Concomitant]
  4. FLURAZEPAM HCL [Concomitant]

REACTIONS (3)
  - HYPOTENSION [None]
  - SYNCOPE [None]
  - URINARY INCONTINENCE [None]
